FAERS Safety Report 7153681-6 (Version None)
Quarter: 2010Q4

REPORT INFORMATION
  Report Type: 
  Country: None (occurrence: None)
  Receive Date: 20101213
  Receipt Date: 20101130
  Transmission Date: 20110411
  Serious: Yes (Other)
  Sender: FDA-Public Use
  Company Number: US-SANOFI-AVENTIS-2010SA072698

PATIENT
  Sex: Male

DRUGS (7)
  1. MULTAQ [Suspect]
     Indication: ATRIAL FIBRILLATION
     Route: 065
     Dates: start: 20101101
  2. AMIODARONE [Concomitant]
     Dates: start: 20101101, end: 20101101
  3. PROPAFENONE HCL [Concomitant]
  4. COUMADIN [Concomitant]
  5. TAMSULOSIN [Concomitant]
     Indication: PROSTATIC DISORDER
  6. SPIRIVA [Concomitant]
     Indication: ASTHMA
  7. BENAZEPRIL HYDROCHLORIDE AND HYDROCHLOROTHIAZIDE [Concomitant]
     Indication: HYPERTENSION

REACTIONS (1)
  - ATRIAL FIBRILLATION [None]
